FAERS Safety Report 7414806-8 (Version None)
Quarter: 2011Q2

REPORT INFORMATION
  Report Type: 
  Country: None (occurrence: None)
  Receive Date: 20110414
  Receipt Date: 20100921
  Transmission Date: 20111010
  Serious: No
  Sender: FDA-Public Use
  Company Number: A0882359A

PATIENT
  Age: 56 Year
  Sex: Female

DRUGS (3)
  1. LUXIQ [Suspect]
     Indication: ALOPECIA
     Dosage: 1APP AT NIGHT
     Route: 061
     Dates: end: 20100914
  2. NO CONCURRENT MEDICATION [Concomitant]
  3. STEROID INJECTIONS [Concomitant]
     Indication: ALOPECIA

REACTIONS (3)
  - PRURITUS [None]
  - DRUG INEFFECTIVE [None]
  - SKIN IRRITATION [None]
